FAERS Safety Report 24041673 (Version 1)
Quarter: 2024Q3

REPORT INFORMATION
  Report Type: Spontaneous
  Country: US (occurrence: US)
  Receive Date: 20240702
  Receipt Date: 20240702
  Transmission Date: 20241016
  Serious: No
  Sender: MYLAN
  Company Number: US-MYLANLABS-2024M1056852

PATIENT
  Sex: Male
  Weight: 61.23 kg

DRUGS (2)
  1. FENTANYL TRANSDERMAL SYSTEM [Suspect]
     Active Substance: FENTANYL
     Indication: Pain
     Dosage: 100 MICROGRAM, QH (1 PATCH ONCE A DAY)
     Route: 062
     Dates: start: 202403
  2. PERCOCET [Concomitant]
     Active Substance: ACETAMINOPHEN\OXYCODONE HYDROCHLORIDE
     Indication: Pain
     Dosage: UNK, QID
     Route: 065

REACTIONS (4)
  - Dysgeusia [Unknown]
  - Application site rash [Unknown]
  - Expired device used [Unknown]
  - Off label use [Unknown]

NARRATIVE: CASE EVENT DATE: 20240101
